FAERS Safety Report 23393207 (Version 1)
Quarter: 2024Q1

REPORT INFORMATION
  Report Type: Spontaneous
  Country: CH (occurrence: CH)
  Receive Date: 20240111
  Receipt Date: 20240111
  Transmission Date: 20240410
  Serious: Yes (Other)
  Sender: FDA-Public Use
  Company Number: None

PATIENT
  Age: 63 Year
  Weight: 87.1 kg

DRUGS (57)
  1. KEFZOL [Suspect]
     Active Substance: CEFAZOLIN SODIUM
     Route: 042
     Dates: start: 20231025, end: 20231026
  2. XARELTO [Concomitant]
     Active Substance: RIVAROXABAN
     Indication: Thrombosis
     Dates: start: 2017, end: 20231025
  3. ENOXAPARIN SODIUM [Concomitant]
     Active Substance: ENOXAPARIN SODIUM
     Dates: start: 20231107
  4. ENOXAPARIN SODIUM [Concomitant]
     Active Substance: ENOXAPARIN SODIUM
     Dates: start: 20231109
  5. ENOXAPARIN SODIUM [Concomitant]
     Active Substance: ENOXAPARIN SODIUM
     Dates: start: 20231026, end: 20231026
  6. ENOXAPARIN SODIUM [Concomitant]
     Active Substance: ENOXAPARIN SODIUM
     Dates: start: 20231104, end: 20231104
  7. ENOXAPARIN SODIUM [Concomitant]
     Active Substance: ENOXAPARIN SODIUM
     Dates: start: 20231103, end: 20231103
  8. ENOXAPARIN SODIUM [Concomitant]
     Active Substance: ENOXAPARIN SODIUM
     Dates: start: 20231027, end: 20231027
  9. SODIUM PICOSULFATE [Concomitant]
     Active Substance: SODIUM PICOSULFATE
     Dates: start: 20231026, end: 20231204
  10. ROCEPHIN [Suspect]
     Active Substance: CEFTRIAXONE SODIUM
     Route: 042
     Dates: start: 20231109, end: 20231202
  11. DUPHALAC [Concomitant]
     Active Substance: LACTULOSE
     Dates: start: 20231028, end: 20231029
  12. QUETIAPINE FUMARATE [Concomitant]
     Active Substance: QUETIAPINE FUMARATE
     Dosage: TIME INTERVAL: AS NECESSARY: AS NECESSARY
     Dates: start: 20231031, end: 20231114
  13. IBUPROFEN [Suspect]
     Active Substance: IBUPROFEN
     Route: 065
     Dates: start: 20231103, end: 20231122
  14. NEBIVOLOL [Concomitant]
     Active Substance: NEBIVOLOL
     Dosage: ?-0-0-0
     Dates: start: 20231025
  15. HEPARIN [Concomitant]
     Active Substance: HEPARIN SODIUM
     Dosage: 20000 E/ 48 ML
     Dates: start: 20231025, end: 20231104
  16. FRESUBIN PROTEIN ENERGY [Concomitant]
     Dosage: 1-1-0-0
     Dates: start: 20231030
  17. NALOXONE HYDROCHLORIDE\OXYCODONE HYDROCHLORIDE [Concomitant]
     Active Substance: NALOXONE HYDROCHLORIDE\OXYCODONE HYDROCHLORIDE
     Dates: start: 20231101
  18. NALOXONE HYDROCHLORIDE\OXYCODONE HYDROCHLORIDE [Concomitant]
     Active Substance: NALOXONE HYDROCHLORIDE\OXYCODONE HYDROCHLORIDE
     Dates: start: 20231026, end: 20231029
  19. METAMIZOLE [Suspect]
     Active Substance: METAMIZOLE
     Route: 065
     Dates: start: 20231025, end: 20231205
  20. FOLIC ACID [Concomitant]
     Active Substance: FOLIC ACID
     Dosage: 1-0-0-0
     Dates: start: 20231025
  21. PANTOPRAZOLE SODIUM [Concomitant]
     Active Substance: PANTOPRAZOLE SODIUM
     Dosage: TIME INTERVAL: AS NECESSARY: AS NECESSARY
     Dates: start: 20231114
  22. PANTOPRAZOLE SODIUM [Concomitant]
     Active Substance: PANTOPRAZOLE SODIUM
     Dosage: 1-0-0-0
     Dates: start: 20231115
  23. OXYCODONE HYDROCHLORIDE [Concomitant]
     Active Substance: OXYCODONE HYDROCHLORIDE
     Dosage: TIME INTERVAL: AS NECESSARY
     Dates: start: 20231025
  24. METHOTREXATE [Concomitant]
     Active Substance: METHOTREXATE
     Indication: Rheumatoid arthritis
     Dates: start: 20231030, end: 20231030
  25. CLEMASTINE FUMARATE [Concomitant]
     Active Substance: CLEMASTINE FUMARATE
     Dosage: TIME INTERVAL: AS NECESSARY: DOSAGE: 2 MG/ML
     Dates: start: 20231130
  26. BULBOID [Concomitant]
     Dosage: TIME INTERVAL: AS NECESSARY: AS NECESSARY
     Dates: start: 20231027
  27. VALVERDE SCHLAF [Concomitant]
     Dosage: TIME INTERVAL: AS NECESSARY: AS NECESSARY
     Dates: start: 20231030
  28. HUMAN RED BLOOD CELL [Concomitant]
     Active Substance: HUMAN RED BLOOD CELL
     Dates: start: 20231122, end: 20231123
  29. ONDANSETRON [Suspect]
     Active Substance: ONDANSETRON
     Dosage: TIME INTERVAL: AS NECESSARY: AS NECESSARY
     Route: 050
     Dates: start: 20231121
  30. ONDANSETRON [Suspect]
     Active Substance: ONDANSETRON
     Dosage: TIME INTERVAL: AS NECESSARY: AS NECESSARY
     Route: 050
     Dates: start: 20231025, end: 20231027
  31. ONDANSETRON [Suspect]
     Active Substance: ONDANSETRON
     Dosage: TIME INTERVAL: AS NECESSARY: AS NECESSARY
     Route: 048
     Dates: start: 20231027, end: 20231121
  32. MINERALS\VITAMINS [Concomitant]
     Active Substance: MINERALS\VITAMINS
     Dosage: 1- 0-0-0
     Dates: start: 20231030
  33. VITAMIN D3 [Concomitant]
     Active Substance: CHOLECALCIFEROL
     Dates: start: 20231025
  34. DROPERIDOL [Concomitant]
     Active Substance: DROPERIDOL
     Dosage: TIME INTERVAL: AS NECESSARY: 1 MG/ 2ML ; AS NECESSARY
     Dates: start: 20231025, end: 20231027
  35. DROPERIDOL [Concomitant]
     Active Substance: DROPERIDOL
     Dosage: TIME INTERVAL: AS NECESSARY: 1 MG/ 2ML ; AS NECESSARY
     Dates: start: 20231107
  36. BURGERSTEIN ZINKGLUKONAT [Concomitant]
     Dosage: 1-0-0-0
     Dates: start: 20231030
  37. TRANSIPEG (PEG3350\ELECTROLYTES) [Concomitant]
     Active Substance: POLYETHYLENE GLYCOL 3350\POTASSIUM CHLORIDE\SODIUM BICARBONATE\SODIUM CHLORIDE\SODIUM SULFATE
     Dates: start: 20231026, end: 20231204
  38. BISACODYL [Concomitant]
     Active Substance: BISACODYL
     Dosage: TIME INTERVAL: AS NECESSARY: AS NECESSARY
     Dates: start: 20231027
  39. ACTIMARIS [Concomitant]
     Dates: start: 20231101, end: 20231204
  40. REMERON [Concomitant]
     Active Substance: MIRTAZAPINE
     Dosage: TIME INTERVAL: AS NECESSARY: AS NECESSARY
     Dates: start: 20231114
  41. CLYSSIE [Concomitant]
  42. CITALOPRAM HYDROBROMIDE [Concomitant]
     Active Substance: CITALOPRAM HYDROBROMIDE
     Dosage: 1-0-0-0
     Dates: start: 20231025
  43. MULTILIND HEILPAST [Concomitant]
     Dates: start: 20231127, end: 20231205
  44. DEXAMETHASONE [Concomitant]
     Active Substance: DEXAMETHASONE
     Dosage: TIME INTERVAL: AS NECESSARY: DOSAGE: 4 MG/ML
     Dates: start: 20231121
  45. DEXAMETHASONE [Concomitant]
     Active Substance: DEXAMETHASONE
     Dosage: TIME INTERVAL: AS NECESSARY: DOSAGE: 4 MG/ML
     Dates: start: 20231025, end: 20231027
  46. TORSEMIDE [Suspect]
     Active Substance: TORSEMIDE
     Dosage: 1-0-0-0
     Route: 065
     Dates: start: 20231028
  47. AMOXICILLIN\CLAVULANATE POTASSIUM [Suspect]
     Active Substance: AMOXICILLIN\CLAVULANATE POTASSIUM
     Route: 042
     Dates: start: 20231107, end: 20231107
  48. AMOXICILLIN\CLAVULANATE POTASSIUM [Suspect]
     Active Substance: AMOXICILLIN\CLAVULANATE POTASSIUM
     Route: 042
     Dates: start: 20231108, end: 20231108
  49. AMOXICILLIN\CLAVULANATE POTASSIUM [Suspect]
     Active Substance: AMOXICILLIN\CLAVULANATE POTASSIUM
     Route: 042
     Dates: start: 20231109, end: 20231109
  50. DIFLUCAN [Suspect]
     Active Substance: FLUCONAZOLE
     Route: 065
     Dates: start: 20231201, end: 20231201
  51. DIFLUCAN [Suspect]
     Active Substance: FLUCONAZOLE
     Route: 065
     Dates: start: 20231127, end: 20231127
  52. VANCOCIN [Suspect]
     Active Substance: VANCOMYCIN HYDROCHLORIDE
     Route: 042
     Dates: start: 20231121, end: 20231121
  53. VANCOCIN [Suspect]
     Active Substance: VANCOMYCIN HYDROCHLORIDE
     Route: 042
     Dates: start: 20231108, end: 20231108
  54. VANCOCIN [Suspect]
     Active Substance: VANCOMYCIN HYDROCHLORIDE
     Route: 042
     Dates: start: 20231107, end: 20231107
  55. LASIX [Suspect]
     Active Substance: FUROSEMIDE
     Dosage: DOSAGE: 20 MG/ML
     Route: 065
     Dates: start: 20231107, end: 20231116
  56. LASIX [Suspect]
     Active Substance: FUROSEMIDE
     Dosage: DOSAGE: 20 MG/ML
     Route: 065
     Dates: start: 20231122, end: 20231123
  57. DAFALGAN [Suspect]
     Active Substance: ACETAMINOPHEN
     Route: 065
     Dates: start: 20231122, end: 20231205

REACTIONS (3)
  - Rash maculo-papular [Not Recovered/Not Resolved]
  - Rash [Not Recovered/Not Resolved]
  - Eosinophilia [Unknown]

NARRATIVE: CASE EVENT DATE: 20231201
